FAERS Safety Report 18844998 (Version 1)
Quarter: 2021Q1

REPORT INFORMATION
  Report Type: Spontaneous
  Country: US (occurrence: US)
  Receive Date: 20210204
  Receipt Date: 20210204
  Transmission Date: 20210419
  Serious: No
  Sender: FDA-Public Use
  Company Number: None

PATIENT
  Age: 49 Year
  Sex: Male
  Weight: 68.95 kg

DRUGS (1)
  1. BUPRENORPHONE/NALOXONE [Suspect]
     Active Substance: BUPRENORPHINE\NALOXONE
     Indication: DRUG DEPENDENCE
     Dates: start: 20201210

REACTIONS (2)
  - Oral mucosal blistering [None]
  - Hypersensitivity [None]

NARRATIVE: CASE EVENT DATE: 20210204
